FAERS Safety Report 9234242 (Version 3)
Quarter: 2013Q4

REPORT INFORMATION
  Report Type: Spontaneous
  Country: FR (occurrence: FR)
  Receive Date: 20130416
  Receipt Date: 20131228
  Transmission Date: 20140711
  Serious: Yes (Hospitalization, Other)
  Sender: FDA-Public Use
  Company Number: FR-ROCHE-1214613

PATIENT
  Age: 49 Year
  Sex: Male

DRUGS (6)
  1. ZELBORAF [Suspect]
     Indication: MALIGNANT MELANOMA
     Route: 048
     Dates: start: 201201, end: 201305
  2. TAREG [Concomitant]
  3. BISOPROLOL [Concomitant]
  4. SERESTA [Concomitant]
  5. DOLIPRANE [Concomitant]
  6. ALLOPURINOL [Concomitant]

REACTIONS (2)
  - Lung disorder [Recovered/Resolved]
  - Leukocytosis [Not Recovered/Not Resolved]
